FAERS Safety Report 15954969 (Version 1)
Quarter: 2019Q1

REPORT INFORMATION
  Report Type: Report from Study
  Country: US (occurrence: US)
  Receive Date: 20190213
  Receipt Date: 20190213
  Transmission Date: 20190417
  Serious: Yes (Hospitalization)
  Sender: FDA-Public Use
  Company Number: US-ROCHE-2263378

PATIENT
  Age: 61 Year
  Sex: Female
  Weight: 95.34 kg

DRUGS (5)
  1. CYCLOBENZAPRINE. [Concomitant]
     Active Substance: CYCLOBENZAPRINE
     Dosage: ONGOING: UNKNOWN
     Route: 048
     Dates: start: 20171218
  2. ASPIRIN. [Concomitant]
     Active Substance: ASPIRIN
     Dosage: ONGOING: UNKNOWN
     Route: 048
     Dates: start: 20171218
  3. ALECENSA [Suspect]
     Active Substance: ALECTINIB HYDROCHLORIDE
     Indication: LUNG NEOPLASM MALIGNANT
     Dosage: TAKE 4 CAPSULES; ONGOING: YES
     Route: 048
     Dates: start: 20171218
  4. ALECENSA [Suspect]
     Active Substance: ALECTINIB HYDROCHLORIDE
     Dosage: 8 DAILY
     Route: 048
     Dates: start: 20171219
  5. OXYCODONE HYDROCHLORIDE. [Concomitant]
     Active Substance: OXYCODONE HYDROCHLORIDE
     Dosage: ONGOING: UNKNOWN
     Route: 048
     Dates: start: 20171218

REACTIONS (1)
  - Thrombosis [Unknown]

NARRATIVE: CASE EVENT DATE: 201901
